FAERS Safety Report 12462234 (Version 1)
Quarter: 2016Q2

REPORT INFORMATION
  Report Type: Spontaneous
  Country: US (occurrence: US)
  Receive Date: 20160613
  Receipt Date: 20160613
  Transmission Date: 20160815
  Serious: No
  Sender: FDA-Public Use
  Company Number: US-009507513-1605USA010975

PATIENT
  Age: 44 Year
  Sex: Female

DRUGS (3)
  1. PROVENTIL [Suspect]
     Active Substance: ALBUTEROL
     Indication: ASTHMA
     Dosage: 90 MCG/2 PUFFS EVERY 4 TO 6 HOURS
     Route: 055
     Dates: start: 200305
  2. PROVENTIL [Suspect]
     Active Substance: ALBUTEROL
     Dosage: 90 MCG/2 PUFFS EVERY 4 TO 6 HOURS
     Route: 055
     Dates: start: 200305
  3. PROAIR HFA [Concomitant]
     Active Substance: ALBUTEROL SULFATE
     Dosage: UNK

REACTIONS (3)
  - Inflammation [Recovered/Resolved]
  - Drug dose omission [Unknown]
  - Product quality issue [Unknown]

NARRATIVE: CASE EVENT DATE: 201512
